FAERS Safety Report 15474917 (Version 3)
Quarter: 2018Q4

REPORT INFORMATION
  Report Type: Spontaneous
  Country: US (occurrence: US)
  Receive Date: 20181008
  Receipt Date: 20181019
  Transmission Date: 20190205
  Serious: No
  Sender: FDA-Public Use
  Company Number: US-TEVA-2018-US-960592

PATIENT
  Age: 81 Year
  Sex: Female

DRUGS (1)
  1. CARTICAP-A (DILTIAZEM) [Suspect]
     Active Substance: DILTIAZEM
     Indication: BLOOD PRESSURE ABNORMAL
     Route: 065

REACTIONS (4)
  - Bone marrow disorder [Unknown]
  - Somnolence [Unknown]
  - Haemoglobin increased [Recovering/Resolving]
  - Fatigue [Unknown]
